FAERS Safety Report 9815712 (Version 3)
Quarter: 2014Q1

REPORT INFORMATION
  Report Type: Spontaneous
  Country: IT (occurrence: None)
  Receive Date: 20140110
  Receipt Date: 20140224
  Transmission Date: 20141002
  Serious: Yes (Hospitalization)
  Sender: FDA-Public Use
  Company Number: AUR-APL-2014-00213

PATIENT
  Age: 74 Year
  Sex: Male
  Weight: 66 kg

DRUGS (4)
  1. LEVOFLOXACIN [Suspect]
     Indication: BRONCHITIS
     Dosage: 1 DOSAGE FORMS, 1 D, ORAL
     Route: 048
     Dates: start: 20131125, end: 20131125
  2. DUOPLAVIN (NEFAZAN COMPUESTO) [Concomitant]
  3. LASIX (FUROSEMIDE) [Concomitant]
  4. LANOXIN (DIGOXIN) [Concomitant]

REACTIONS (2)
  - Dermatitis [None]
  - Hypersensitivity vasculitis [None]
